FAERS Safety Report 9340950 (Version 1)
Quarter: 2013Q2

REPORT INFORMATION
  Report Type: Report from Study
  Country: US (occurrence: US)
  Receive Date: 20130610
  Receipt Date: 20130610
  Transmission Date: 20140414
  Serious: Yes (Other)
  Sender: FDA-Public Use
  Company Number: US-ACTELION-A-US2013-83698

PATIENT
  Age: 68 Year
  Sex: Female

DRUGS (2)
  1. TRACLEER [Suspect]
     Indication: PULMONARY ARTERIAL HYPERTENSION
     Dosage: UNK
     Route: 048
     Dates: start: 20130411
  2. ADCIRCA [Concomitant]

REACTIONS (3)
  - Micturition disorder [Recovering/Resolving]
  - Oedema peripheral [Recovering/Resolving]
  - Syncope [Recovering/Resolving]
